FAERS Safety Report 17262409 (Version 1)
Quarter: 2020Q3

REPORT INFORMATION
  Report Type: Report from Study
  Country: FI (occurrence: FI)
  Receive Date: 20200113
  Receipt Date: 20200113
  Transmission Date: 20201104
  Serious: Yes (Hospitalization)
  Sender: FDA-Public Use
  Company Number: NVSC2020FI001257

PATIENT
  Age: 73 Year
  Sex: Female
  Weight: 60 kg

DRUGS (3)
  1. DECITABINE. [Suspect]
     Active Substance: DECITABINE
     Indication: MYELODYSPLASTIC SYNDROME
  2. SABATOLIMAB. [Suspect]
     Active Substance: SABATOLIMAB
     Indication: MYELODYSPLASTIC SYNDROME
     Dosage: 240 MG, Q4W
     Route: 042
     Dates: start: 20170928
  3. DECITABINE. [Suspect]
     Active Substance: DECITABINE
     Indication: ACUTE MYELOID LEUKAEMIA
     Dosage: 33 MG, QD
     Route: 042
     Dates: start: 20170921

REACTIONS (1)
  - Febrile neutropenia [Recovered/Resolved]

NARRATIVE: CASE EVENT DATE: 20200103
